FAERS Safety Report 6296911-5 (Version None)
Quarter: 2009Q3

REPORT INFORMATION
  Report Type: 
  Country: None (occurrence: None)
  Receive Date: 20090728
  Receipt Date: 20090713
  Transmission Date: 20100115
  Serious: Yes (Other)
  Sender: FDA-Public Use
  Company Number: GAM-036-09-AU

PATIENT
  Age: 29 Year
  Sex: Female

DRUGS (11)
  1. OCTAGAM 5%        (HUMAN NORMAL IMMUNOGLOBULIN FOR IV ) [Suspect]
     Indication: ANTIPHOSPHOLIPID SYNDROME
     Dosage: 67.5 G, I.V.
     Route: 042
     Dates: start: 20080312, end: 20090302
  2. OCTAGAM [Suspect]
  3. OCTAGAM [Suspect]
  4. OCTAGAM [Suspect]
  5. OCTAGAM [Suspect]
  6. OCTAGAM [Suspect]
  7. OCTAGAM [Suspect]
  8. OCTAGAM [Suspect]
  9. OCTAGAM [Suspect]
  10. ASPIRIN [Concomitant]
  11. ENOXAPARIN SODIUM [Concomitant]

REACTIONS (5)
  - DRUG EXPOSURE DURING PREGNANCY [None]
  - HEPATITIS B ANTIBODY POSITIVE [None]
  - INTRA-UTERINE DEATH [None]
  - PREGNANCY [None]
  - TRANSMISSION OF AN INFECTIOUS AGENT VIA A MEDICINAL PRODUCT [None]
